FAERS Safety Report 6296634-2 (Version None)
Quarter: 2009Q3

REPORT INFORMATION
  Report Type: 
  Country: None (occurrence: None)
  Receive Date: 20090804
  Receipt Date: 20090723
  Transmission Date: 20100115
  Serious: Yes (Life-Threatening)
  Sender: FDA-Public Use
  Company Number: GB-PFIZER INC-2009244506

PATIENT
  Age: 83 Year

DRUGS (7)
  1. BENDROFLUAZIDE [Suspect]
     Indication: HYPERTENSION
     Dosage: 2.5 MG, 1X/DAY
     Dates: end: 20090702
  2. DOXAZOSIN MESILATE [Suspect]
     Indication: HYPERTENSION
     Dosage: 4 MG, 1X/DAY
     Route: 048
     Dates: end: 20090702
  3. ACETYLSALICYLIC ACID [Suspect]
     Dosage: 75 MG, 1X/DAY
     Route: 048
     Dates: end: 20000702
  4. BISOPROLOL [Concomitant]
     Indication: ANGINA PECTORIS
     Dosage: 3.75 MG, 1X/DAY
     Route: 048
  5. BISOPROLOL [Concomitant]
     Indication: ATRIAL FIBRILLATION
  6. BISOPROLOL [Concomitant]
     Indication: HYPERTENSION
  7. FINASTERIDE [Concomitant]
     Indication: BENIGN PROSTATIC HYPERPLASIA
     Dosage: 5 MG, 1X/DAY
     Route: 048

REACTIONS (7)
  - CHEST PAIN [None]
  - CONTUSION [None]
  - DIZZINESS [None]
  - EPISTAXIS [None]
  - SNEEZING [None]
  - THROMBOCYTOPENIA [None]
  - TREMOR [None]
